FAERS Safety Report 12714512 (Version 1)
Quarter: 2016Q3

REPORT INFORMATION
  Report Type: Spontaneous
  Country: US (occurrence: US)
  Receive Date: 20160905
  Receipt Date: 20160905
  Transmission Date: 20161109
  Serious: No
  Sender: FDA-Public Use
  Company Number: US-JAZZ-2016-US-009025

PATIENT
  Sex: Female

DRUGS (31)
  1. XYREM [Suspect]
     Active Substance: SODIUM OXYBATE
     Dosage: DOSE ADJUSTMENTS
     Route: 048
  2. XYREM [Suspect]
     Active Substance: SODIUM OXYBATE
     Dosage: 4.5 G, BID
     Route: 048
     Dates: start: 201601, end: 2016
  3. LEXAPRO [Concomitant]
     Active Substance: ESCITALOPRAM OXALATE
  4. METOPROLOL TARTRATE. [Concomitant]
     Active Substance: METOPROLOL TARTRATE
  5. NORTRIPTYLINE HCL [Concomitant]
     Active Substance: NORTRIPTYLINE HYDROCHLORIDE
  6. HYDROCODONE BITARTRATE AND ACETAMINOPHEN [Concomitant]
     Active Substance: ACETAMINOPHEN\HYDROCODONE BITARTRATE
  7. SEROQUEL [Concomitant]
     Active Substance: QUETIAPINE FUMARATE
  8. MIRAPEX [Concomitant]
     Active Substance: PRAMIPEXOLE DIHYDROCHLORIDE
  9. TEMAZEPAM. [Concomitant]
     Active Substance: TEMAZEPAM
  10. LEVOTHYROXINE SODIUM. [Concomitant]
     Active Substance: LEVOTHYROXINE SODIUM
  11. DEPO-PROVERA [Concomitant]
     Active Substance: MEDROXYPROGESTERONE ACETATE
  12. HYDROXYZINE HCL [Concomitant]
     Active Substance: HYDROXYZINE HYDROCHLORIDE
  13. LUNESTA [Concomitant]
     Active Substance: ESZOPICLONE
  14. ABILIFY [Concomitant]
     Active Substance: ARIPIPRAZOLE
  15. FLONASE [Concomitant]
     Active Substance: FLUTICASONE PROPIONATE
  16. RISPERDAL [Concomitant]
     Active Substance: RISPERIDONE
  17. DITROPAN [Concomitant]
     Active Substance: OXYBUTYNIN CHLORIDE
  18. ELMIRON [Concomitant]
     Active Substance: PENTOSAN POLYSULFATE SODIUM
  19. NUVIGIL [Concomitant]
     Active Substance: ARMODAFINIL
  20. MORPHINE SULF [Concomitant]
     Active Substance: MORPHINE SULFATE
  21. ACYCLOVIR. [Concomitant]
     Active Substance: ACYCLOVIR
  22. TOPAMAX [Concomitant]
     Active Substance: TOPIRAMATE
  23. METHADONE HCL [Concomitant]
     Active Substance: METHADONE HYDROCHLORIDE
  24. CLONAZEPAM. [Concomitant]
     Active Substance: CLONAZEPAM
  25. LITHIUM CARBONATE. [Concomitant]
     Active Substance: LITHIUM CARBONATE
  26. BUTRANS [Concomitant]
     Active Substance: BUPRENORPHINE
  27. VOLTAREN [Concomitant]
     Active Substance: DICLOFENAC SODIUM
  28. XYREM [Suspect]
     Active Substance: SODIUM OXYBATE
     Indication: NARCOLEPSY
     Dosage: 2.25 G, BID
     Route: 048
     Dates: start: 201108, end: 201110
  29. XYREM [Suspect]
     Active Substance: SODIUM OXYBATE
     Dosage: 4 G, BID
     Route: 048
     Dates: start: 2016
  30. TERAZOSIN [Concomitant]
     Active Substance: TERAZOSIN\TERAZOSIN HYDROCHLORIDE
  31. VALIUM [Concomitant]
     Active Substance: DIAZEPAM

REACTIONS (1)
  - Intentional product use issue [Unknown]
